FAERS Safety Report 7399292-9 (Version None)
Quarter: 2011Q1

REPORT INFORMATION
  Report Type: 
  Country: None (occurrence: None)
  Receive Date: 20110301
  Receipt Date: 20100216
  Transmission Date: 20110831
  Serious: Yes (Hospitalization)
  Sender: FDA-Public Use
  Company Number: RB-8595-2009

PATIENT
  Sex: Female

DRUGS (3)
  1. GEODON [Concomitant]
  2. SUBOXONE [Suspect]
     Indication: DRUG DEPENDENCE
     Dosage: (16 MG SUBLINGUAL), (PATIENT TAKES 2 TABLETS DAILY SUBLINGUAL)
     Route: 060
     Dates: start: 20081204, end: 20081227
  3. KLONOPIN [Concomitant]

REACTIONS (1)
  - INJURY [None]
